FAERS Safety Report 15221195 (Version 8)
Quarter: 2020Q1

REPORT INFORMATION
  Report Type: Spontaneous
  Country: US (occurrence: US)
  Receive Date: 20180731
  Receipt Date: 20200206
  Transmission Date: 20200409
  Serious: No
  Sender: FDA-Public Use
  Company Number: US-SA-2018SA205217

PATIENT
  Age: 74 Year
  Sex: Male

DRUGS (2)
  1. DUPIXENT [Suspect]
     Active Substance: DUPILUMAB
     Indication: PRURITUS
     Dosage: 300 MG, QOW
     Route: 058
     Dates: start: 201803
  2. DUPIXENT [Suspect]
     Active Substance: DUPILUMAB
     Indication: DERMATITIS ATOPIC
     Dosage: 600 MG, 1X
     Route: 058
     Dates: start: 20180315, end: 20180315

REACTIONS (9)
  - Therapeutic response decreased [Unknown]
  - Product dose omission [Unknown]
  - Bronchitis [Unknown]
  - Drug dose omission by device [Unknown]
  - Needle issue [Unknown]
  - Arthralgia [Unknown]
  - Dermatitis atopic [Unknown]
  - Rash [Unknown]
  - Skin mass [Unknown]

NARRATIVE: CASE EVENT DATE: 20190909
